FAERS Safety Report 7485100-4 (Version None)
Quarter: 2011Q2

REPORT INFORMATION
  Report Type: 
  Country: None (occurrence: None)
  Receive Date: 20110517
  Receipt Date: 20101115
  Transmission Date: 20111010
  Serious: No
  Sender: FDA-Public Use
  Company Number: US-BAYER-2010-005488

PATIENT
  Sex: Female
  Weight: 115 kg

DRUGS (1)
  1. ALEVE (CAPLET) [Suspect]
     Indication: ABDOMINAL PAIN UPPER
     Dosage: UNK
     Route: 048
     Dates: start: 20101115

REACTIONS (5)
  - OTORRHOEA [None]
  - FEELING ABNORMAL [None]
  - EAR DISCOMFORT [None]
  - ABDOMINAL PAIN UPPER [None]
  - EAR PAIN [None]
